FAERS Safety Report 15239030 (Version 1)
Quarter: 2018Q3

REPORT INFORMATION
  Report Type: Spontaneous
  Country: US (occurrence: US)
  Receive Date: 20180803
  Receipt Date: 20180803
  Transmission Date: 20181010
  Serious: No
  Sender: FDA-Public Use
  Company Number: US-BAYER-2018-141302

PATIENT

DRUGS (2)
  1. ALEVE [Suspect]
     Active Substance: NAPROXEN SODIUM
     Route: 065
  2. BAYER ASPIRIN [Suspect]
     Active Substance: ASPIRIN

REACTIONS (2)
  - Adverse drug reaction [Unknown]
  - Product use complaint [None]
